FAERS Safety Report 4871705-3 (Version None)
Quarter: 2005Q4

REPORT INFORMATION
  Report Type: 
  Country: None (occurrence: None)
  Receive Date: 20051230
  Receipt Date: 20051215
  Transmission Date: 20060501
  Serious: Yes (Disabling)
  Sender: FDA-Public Use
  Company Number: DE-GDP-0512522

PATIENT
  Age: 66 Year
  Sex: Male

DRUGS (9)
  1. METVIX-PDT            (METHYL AMINOLEVULINATE HYDROCHLORIDE) [Suspect]
     Indication: ACTINIC KERATOSIS
     Dosage: 1 APP, TP
     Route: 061
     Dates: start: 20051213, end: 20051213
  2. METOPROLOL [Concomitant]
  3. IRBESARTAN [Concomitant]
  4. ATORVASTATIN [Concomitant]
  5. ASPIRIN [Concomitant]
  6. ZOPICLONE [Concomitant]
  7. MAGNESIUM [Concomitant]
  8. VEGETABLE OIL [Concomitant]
  9. OXANA [Concomitant]

REACTIONS (1)
  - VITREOUS DETACHMENT [None]
